FAERS Safety Report 4832516-8 (Version None)
Quarter: 2005Q4

REPORT INFORMATION
  Report Type: 
  Country: None (occurrence: None)
  Receive Date: 20051117
  Receipt Date: 20051104
  Transmission Date: 20060501
  Serious: No
  Sender: FDA-Public Use
  Company Number: 2005-01212

PATIENT
  Age: 47 Year
  Sex: Female
  Weight: 81.6 kg

DRUGS (7)
  1. VELCADE [Suspect]
     Indication: MULTIPLE MYELOMA
     Dosage: 2.50 MG, 2/WEEK; INTRAVENOUS
     Route: 042
     Dates: start: 20050503, end: 20050527
  2. PAXIL [Concomitant]
  3. MULTIVITAMIN [Concomitant]
  4. PREMARIN [Concomitant]
  5. SYNTHROID [Concomitant]
  6. CALCIUM + MULTIVITAMIN + VITAMIN D [Concomitant]
  7. ZOMETA [Concomitant]

REACTIONS (8)
  - CHEST DISCOMFORT [None]
  - CHEST PAIN [None]
  - EPIGASTRIC DISCOMFORT [None]
  - FATIGUE [None]
  - GASTROOESOPHAGEAL REFLUX DISEASE [None]
  - MONOCLONAL IMMUNOGLOBULIN PRESENT [None]
  - NEUROPATHY PERIPHERAL [None]
  - PALPITATIONS [None]
